FAERS Safety Report 10502512 (Version 1)
Quarter: 2014Q4

REPORT INFORMATION
  Report Type: Spontaneous
  Country: US (occurrence: US)
  Receive Date: 20141007
  Receipt Date: 20141007
  Transmission Date: 20150528
  Serious: Yes (Death)
  Sender: FDA-Public Use
  Company Number: US-INCYTE CORPORATION-2014IN002924

PATIENT
  Age: 80 Year
  Sex: Male

DRUGS (8)
  1. PRILOSEC [Concomitant]
     Active Substance: OMEPRAZOLE MAGNESIUM
  2. JALYN [Concomitant]
     Active Substance: DUTASTERIDE\TAMSULOSIN HYDROCHLORIDE
  3. JAKAFI [Suspect]
     Active Substance: RUXOLITINIB
     Indication: MYELOFIBROSIS
     Dosage: 10 MG, BID
     Route: 048
     Dates: start: 20140924, end: 20141003
  4. VITAMIN D                          /00107901/ [Concomitant]
     Active Substance: ERGOCALCIFEROL
  5. FISH OIL [Concomitant]
     Active Substance: FISH OIL
  6. MULTIVITAMINS [Concomitant]
     Active Substance: VITAMINS
  7. NIASPAN [Concomitant]
     Active Substance: NIACIN
  8. SAW PALMETTO                       /00833501/ [Concomitant]
     Active Substance: SAW PALMETTO

REACTIONS (1)
  - Death [Fatal]

NARRATIVE: CASE EVENT DATE: 20141003
